FAERS Safety Report 5190816-9 (Version None)
Quarter: 2006Q4

REPORT INFORMATION
  Report Type: 
  Country: None (occurrence: None)
  Receive Date: 20061215
  Receipt Date: 20061204
  Transmission Date: 20070319
  Serious: Yes (Other)
  Sender: FDA-Public Use
  Company Number: S06-CAN-05236-01

PATIENT
  Age: 52 Year
  Sex: Male

DRUGS (3)
  1. CIPRALEX [Suspect]
     Indication: DEPRESSION
     Dosage: 10 MG QD PO
     Route: 048
     Dates: start: 20051229
  2. LORAZEPAM [Concomitant]
  3. CHEMOTHERAPEUTICS [Concomitant]

REACTIONS (1)
  - CONVULSION [None]
